FAERS Safety Report 9203779 (Version 1)
Quarter: 2013Q2

REPORT INFORMATION
  Report Type: Report from Study
  Country: JP (occurrence: JP)
  Receive Date: 20130402
  Receipt Date: 20130402
  Transmission Date: 20140414
  Serious: Yes (Hospitalization)
  Sender: FDA-Public Use
  Company Number: JP-AMGEN-JPNCT2013022033

PATIENT
  Age: 84 Year
  Sex: Female
  Weight: 43 kg

DRUGS (13)
  1. DARBEPOETIN ALFA [Suspect]
     Indication: NEPHROGENIC ANAEMIA
     Dosage: 30 MUG, QD
     Route: 058
     Dates: start: 20110517, end: 20110517
  2. DARBEPOETIN ALFA [Suspect]
     Dosage: 30 MUG, QD
     Route: 058
     Dates: start: 20110621, end: 20110621
  3. DARBEPOETIN ALFA [Suspect]
     Dosage: 30 MUG, QD
     Route: 058
     Dates: start: 20110726, end: 20110726
  4. DARBEPOETIN ALFA [Suspect]
     Dosage: 30 MUG, QD
     Route: 058
     Dates: start: 20110906, end: 20110906
  5. DARBEPOETIN ALFA [Suspect]
     Dosage: 30 MUG, QD
     Route: 058
     Dates: start: 20111025, end: 20111025
  6. DARBEPOETIN ALFA [Suspect]
     Dosage: 30 MUG, QD
     Route: 058
     Dates: start: 20111213, end: 20111213
  7. DARBEPOETIN ALFA [Suspect]
     Dosage: 30 MUG, QD
     Route: 058
     Dates: start: 20120228, end: 20120228
  8. DARBEPOETIN ALFA [Suspect]
     Dosage: 30 MUG, QD
     Route: 058
     Dates: start: 20120410
  9. TAKEPRON [Concomitant]
     Dosage: UNK
     Route: 048
  10. LENDORMIN [Concomitant]
     Dosage: UNK
     Route: 048
  11. LAXOBERON [Concomitant]
     Dosage: UNK
     Route: 048
  12. JUSO [Concomitant]
     Dosage: UNK
     Route: 048
  13. KREMEZIN [Concomitant]
     Dosage: UNK
     Route: 048

REACTIONS (1)
  - Cerebellar infarction [Recovered/Resolved]
